FAERS Safety Report 8172510-5 (Version None)
Quarter: 2012Q1

REPORT INFORMATION
  Report Type: 
  Country: None (occurrence: None)
  Receive Date: 20120227
  Receipt Date: 20120227
  Transmission Date: 20120608
  Serious: Yes (Hospitalization)
  Sender: FDA-Public Use
  Company Number: None

PATIENT
  Age: 46 Year
  Sex: Female
  Weight: 67.9 kg

DRUGS (4)
  1. METHAMPHETAMINE HYDROCHLORIDE [Suspect]
     Indication: DRUG ABUSER
     Dosage: IV
     Route: 042
     Dates: start: 20100301, end: 20100901
  2. LANSOPRAZOLE [Concomitant]
  3. METOPROLOL SUCCINATE [Concomitant]
  4. LISINOPRIL [Concomitant]

REACTIONS (5)
  - HEPATITIS [None]
  - INTERNATIONAL NORMALISED RATIO INCREASED [None]
  - SMOOTH MUSCLE ANTIBODY POSITIVE [None]
  - PRURITUS [None]
  - CALCULUS URETERIC [None]
